FAERS Safety Report 18788621 (Version 1)
Quarter: 2021Q1

REPORT INFORMATION
  Report Type: Spontaneous
  Country: US (occurrence: US)
  Receive Date: 20210126
  Receipt Date: 20210126
  Transmission Date: 20210419
  Serious: Yes (Hospitalization)
  Sender: FDA-Public Use
  Company Number: None

PATIENT
  Age: 79 Year
  Sex: Female
  Weight: 52.3 kg

DRUGS (6)
  1. METHENAMINE [Concomitant]
     Active Substance: METHENAMINE
  2. TAMSULOSIN [Concomitant]
     Active Substance: TAMSULOSIN
  3. LEVOTHYROXINE. [Concomitant]
     Active Substance: LEVOTHYROXINE
  4. BAMLANIVIMAB. [Suspect]
     Active Substance: BAMLANIVIMAB
     Indication: COVID-19
     Route: 041
     Dates: start: 20210120, end: 20210120
  5. ATORVASTATIN [Concomitant]
     Active Substance: ATORVASTATIN
  6. DRONEDARONE [Concomitant]
     Active Substance: DRONEDARONE

REACTIONS (6)
  - Asthenia [None]
  - Blood sodium increased [None]
  - Hypophagia [None]
  - Communication disorder [None]
  - Pain [None]
  - Encephalopathy [None]

NARRATIVE: CASE EVENT DATE: 20210125
